FAERS Safety Report 4630134-8 (Version None)
Quarter: 2005Q2

REPORT INFORMATION
  Report Type: 
  Country: None (occurrence: None)
  Receive Date: 20050408
  Receipt Date: 20050401
  Transmission Date: 20051028
  Serious: Yes (Other)
  Sender: FDA-Public Use
  Company Number: GB-GLAXOSMITHKLINE-B0376596A

PATIENT
  Age: 36 Year
  Sex: Female

DRUGS (2)
  1. COMBIVIR [Suspect]
     Indication: SYSTEMIC ANTIVIRAL TREATMENT
     Dosage: 2TAB PER DAY
     Route: 048
  2. EFAVIRENZ [Suspect]
     Indication: SYSTEMIC ANTIVIRAL TREATMENT
     Dosage: 600MG PER DAY
     Route: 048

REACTIONS (3)
  - CHORIOAMNIONITIS [None]
  - PLACENTAL INSUFFICIENCY [None]
  - STILLBIRTH [None]
